FAERS Safety Report 7233843-X (Version None)
Quarter: 2011Q1

REPORT INFORMATION
  Report Type: 
  Country: None (occurrence: None)
  Receive Date: 20110119
  Receipt Date: 20100210
  Transmission Date: 20110831
  Serious: No
  Sender: FDA-Public Use
  Company Number: US-TEVA-224363USA

PATIENT
  Sex: Female

DRUGS (1)
  1. COPAXONE [Suspect]
     Indication: RELAPSING-REMITTING MULTIPLE SCLEROSIS
     Route: 058
     Dates: start: 20080929

REACTIONS (4)
  - HEADACHE [None]
  - FLUSHING [None]
  - IMMEDIATE POST-INJECTION REACTION [None]
  - CHEST DISCOMFORT [None]
